FAERS Safety Report 8224253-7 (Version None)
Quarter: 2012Q1

REPORT INFORMATION
  Report Type: 
  Country: None (occurrence: None)
  Receive Date: 20120321
  Receipt Date: 20120308
  Transmission Date: 20120608
  Serious: Yes (Other)
  Sender: FDA-Public Use
  Company Number: PHEH2011US04208

PATIENT
  Sex: Female

DRUGS (3)
  1. PENICILLIN [Concomitant]
     Indication: TOOTH INFECTION
  2. PERIDEX [Concomitant]
  3. TASIGNA [Suspect]
     Indication: CHRONIC MYELOID LEUKAEMIA
     Dosage: 400 MG, QD
     Route: 048
     Dates: start: 20090604

REACTIONS (4)
  - TOOTH INFECTION [None]
  - ORAL DISORDER [None]
  - GINGIVAL DISORDER [None]
  - OSTEOPOROSIS [None]
